FAERS Safety Report 5412994-6 (Version None)
Quarter: 2007Q3

REPORT INFORMATION
  Report Type: 
  Country: None (occurrence: None)
  Receive Date: 20070813
  Receipt Date: 20070801
  Transmission Date: 20080115
  Serious: Yes (Other)
  Sender: FDA-Public Use
  Company Number: US-PFIZER INC-2007033624

PATIENT
  Sex: Female
  Weight: 41.3 kg

DRUGS (5)
  1. ZITHROMAX [Suspect]
     Indication: CELLULITIS
     Dates: start: 20070416, end: 20070419
  2. LEVOXYL [Concomitant]
  3. VIVELLE [Concomitant]
  4. LASIX [Concomitant]
  5. POTASSIUM CHLORIDE [Concomitant]

REACTIONS (1)
  - ARRHYTHMIA [None]
